FAERS Safety Report 9445732 (Version 1)
Quarter: 2013Q3

REPORT INFORMATION
  Report Type: Spontaneous
  Country: FR (occurrence: FR)
  Receive Date: 20130807
  Receipt Date: 20130807
  Transmission Date: 20140515
  Serious: Yes (Death)
  Sender: FDA-Public Use
  Company Number: FR-BRISTOL-MYERS SQUIBB COMPANY-19158344

PATIENT
  Sex: 0

DRUGS (1)
  1. COUMADINE [Suspect]

REACTIONS (1)
  - Overdose [Fatal]
